FAERS Safety Report 25773874 (Version 1)
Quarter: 2025Q3

REPORT INFORMATION
  Report Type: Spontaneous
  Country: US (occurrence: None)
  Receive Date: 20250905
  Receipt Date: 20250905
  Transmission Date: 20251020
  Serious: Yes (Other)
  Sender: FDA-CTU
  Company Number: None

PATIENT
  Age: 77 Year
  Sex: Male

DRUGS (2)
  1. ERLEADA [Suspect]
     Active Substance: APALUTAMIDE
     Dosage: FREQUENCY : DAILY;?
     Route: 048
     Dates: start: 20211001, end: 20250729
  2. SIMVASTATIN [Suspect]
     Active Substance: SIMVASTATIN

REACTIONS (2)
  - Fatigue [None]
  - Eczema [None]

NARRATIVE: CASE EVENT DATE: 20250729
